FAERS Safety Report 9701266 (Version 2)
Quarter: 2013Q4

REPORT INFORMATION
  Report Type: Spontaneous
  Country: US (occurrence: US)
  Receive Date: 20131121
  Receipt Date: 20131121
  Transmission Date: 20140711
  Serious: No
  Sender: FDA-Public Use
  Company Number: US-GILEAD-2008-0015923

PATIENT
  Sex: Female

DRUGS (4)
  1. LETAIRIS [Suspect]
     Route: 048
     Dates: start: 20071015
  2. PREDNISONE [Concomitant]
  3. OMNICEF [Concomitant]
  4. NIFEREX [Concomitant]

REACTIONS (4)
  - Nausea [Not Recovered/Not Resolved]
  - Decreased appetite [Not Recovered/Not Resolved]
  - Fatigue [Not Recovered/Not Resolved]
  - Pain [Not Recovered/Not Resolved]
